FAERS Safety Report 8382733-8 (Version None)
Quarter: 2012Q2

REPORT INFORMATION
  Report Type: 
  Country: None (occurrence: None)
  Receive Date: 20120524
  Receipt Date: 20120416
  Transmission Date: 20120825
  Serious: No
  Sender: FDA-Public Use
  Company Number: US-ALLERGAN-1205412US

PATIENT
  Age: 67 Year
  Sex: Male

DRUGS (3)
  1. LASTACAFT [Suspect]
     Indication: SEASONAL ALLERGY
     Dosage: 2 GTT, UNK
     Route: 047
     Dates: start: 20120301, end: 20120413
  2. XANATOR GENERIC [Concomitant]
     Indication: SEASONAL ALLERGY
  3. ASPIRIN [Concomitant]
     Indication: THROMBOSIS

REACTIONS (2)
  - SCLERAL HYPERAEMIA [None]
  - ABNORMAL SENSATION IN EYE [None]
